FAERS Safety Report 6913870-X (Version None)
Quarter: 2010Q3

REPORT INFORMATION
  Report Type: 
  Country: None (occurrence: None)
  Receive Date: 20100809
  Receipt Date: 20100804
  Transmission Date: 20110219
  Serious: Yes (Death, Other)
  Sender: FDA-Public Use
  Company Number: JP-BAYER-201010497BYL

PATIENT
  Age: 70 Year
  Sex: Male
  Weight: 56 kg

DRUGS (11)
  1. NEXAVAR [Suspect]
     Indication: HEPATIC NEOPLASM MALIGNANT
     Dosage: TOTAL DAILY DOSE: 800 MG  UNIT DOSE: 200 MG
     Route: 048
     Dates: start: 20090629, end: 20090805
  2. NEXAVAR [Suspect]
     Dosage: UNIT DOSE: 200 MG
     Route: 048
     Dates: start: 20090806, end: 20100406
  3. ARTIST [Concomitant]
     Dosage: SINCE BEFORE ADMINISTRATION
     Route: 048
  4. OMEPRAL [Concomitant]
     Dosage: SINCE BEFORE ADMINISTRATION
     Route: 048
  5. AZELASTINE HCL [Concomitant]
     Dosage: SINCE BEFORE ADMINISTRATION
     Route: 048
  6. ZYLORIC [Concomitant]
     Dosage: SINCE BEFORE ADMINISTRATION
     Route: 048
  7. TANATRIL [Concomitant]
     Dosage: SINCE BEFORE ADMINISTRATION
     Route: 048
  8. LIVACT [Concomitant]
     Dosage: SINCE BEFORE ADMINISTRATION
     Route: 048
  9. EURODIN [Concomitant]
     Dosage: SINCE BEFORE ADMINISTRATION
     Route: 048
  10. OXYCONTIN [Concomitant]
     Dosage: SINCE BEFORE ADMINISTRATION
     Route: 048
  11. AMARYL [Concomitant]
     Dosage: SINCE BEFORE ADMINISTRATION
     Route: 048

REACTIONS (4)
  - ANAEMIA [None]
  - HEPATIC FUNCTION ABNORMAL [None]
  - HEPATIC NEOPLASM MALIGNANT [None]
  - RASH [None]
